FAERS Safety Report 18080380 (Version 4)
Quarter: 2021Q1

REPORT INFORMATION
  Report Type: Report from Study
  Country: IL (occurrence: IL)
  Receive Date: 20200728
  Receipt Date: 20210113
  Transmission Date: 20210419
  Serious: Yes (Death, Hospitalization)
  Sender: FDA-Public Use
  Company Number: IL-BRISTOL-MYERS SQUIBB COMPANY-BMS-2020-020860

PATIENT
  Age: 84 Year
  Sex: Male

DRUGS (14)
  1. BEMPEGALDESLEUKIN [Suspect]
     Active Substance: BEMPEGALDESLEUKIN
     Indication: TRANSITIONAL CELL CARCINOMA
     Dosage: 0.006 MILLIGRAM/KILOGRAM(0.59 MG), Q3WK
     Route: 042
     Dates: start: 20200301
  2. CARTIA [ACETYLSALICYLIC ACID] [Concomitant]
     Active Substance: ASPIRIN
     Indication: HYPERTENSION
     Dosage: 100 MILLIGRAM
     Route: 065
     Dates: start: 2016
  3. DOXYCYCLINE. [Suspect]
     Active Substance: DOXYCYCLINE
     Indication: PNEUMONIA
     Dosage: UNK
     Route: 065
     Dates: start: 2020
  4. FUSID [FUROSEMIDE] [Concomitant]
     Active Substance: FUROSEMIDE
     Indication: HYPERTENSION
     Dosage: 20 MILLIGRAM
     Route: 065
     Dates: start: 2017
  5. CODEIN [Concomitant]
     Active Substance: CODEINE
     Indication: MUSCULOSKELETAL PAIN
     Dosage: UNK
     Route: 065
     Dates: start: 2020
  6. LIPITOR [Concomitant]
     Active Substance: ATORVASTATIN CALCIUM
     Indication: HYPERLIPIDAEMIA
  7. NIVOLUMAB [Suspect]
     Active Substance: NIVOLUMAB
     Indication: TRANSITIONAL CELL CARCINOMA
     Dosage: 360 MILLIGRAM, Q3WK
     Route: 042
     Dates: start: 20200301
  8. CARTIA [ACETYLSALICYLIC ACID] [Concomitant]
     Active Substance: ASPIRIN
     Indication: PROPHYLAXIS
  9. OMEPRADEX [Concomitant]
     Active Substance: OMEPRAZOLE
     Indication: PROPHYLAXIS
     Dosage: UNK
     Route: 065
     Dates: start: 2017
  10. ALPHA D3 [Concomitant]
     Active Substance: ALFACALCIDOL
     Indication: SUPPLEMENTATION THERAPY
     Dosage: UNK
     Route: 065
     Dates: start: 2018
  11. CODEIN [Concomitant]
     Active Substance: CODEINE
     Indication: COUGH
  12. ALLORIL [Concomitant]
     Active Substance: ALLOPURINOL
     Indication: GOUT
     Dosage: UNK
     Route: 065
     Dates: start: 2017
  13. AMLOW [AMLODIPINE MALEATE] [Concomitant]
     Indication: HYPERTENSION
     Dosage: 5 MILLIGRAM
     Route: 065
     Dates: start: 2017
  14. LIPITOR [Concomitant]
     Active Substance: ATORVASTATIN CALCIUM
     Indication: HYPERLIPIDAEMIA
     Dosage: 20 MILLIGRAM
     Route: 065
     Dates: start: 2016

REACTIONS (2)
  - General physical health deterioration [Fatal]
  - Cutaneous vasculitis [Recovered/Resolved]

NARRATIVE: CASE EVENT DATE: 20200307
